FAERS Safety Report 10986238 (Version 1)
Quarter: 2015Q1

REPORT INFORMATION
  Report Type: Spontaneous
  Country: US (occurrence: None)
  Receive Date: 20150324
  Receipt Date: 20150324
  Transmission Date: 20150721
  Serious: Yes (Hospitalization)
  Sender: FDA-Public Use
  Company Number: 1000053023

PATIENT
  Age: 3 Year

DRUGS (1)
  1. VIIBRYD [Suspect]
     Active Substance: VILAZODONE HYDROCHLORIDE
     Route: 048
     Dates: start: 20140120, end: 20140120

REACTIONS (2)
  - Somnolence [None]
  - Accidental exposure to product [None]

NARRATIVE: CASE EVENT DATE: 20140120
